FAERS Safety Report 10140344 (Version 2)
Quarter: 2014Q2

REPORT INFORMATION
  Report Type: Report from Study
  Country: ES (occurrence: ES)
  Receive Date: 20140429
  Receipt Date: 20140523
  Transmission Date: 20141212
  Serious: Yes (Hospitalization)
  Sender: FDA-Public Use
  Company Number: ES-SA-2014SA053200

PATIENT
  Age: 64 Year
  Sex: Male

DRUGS (13)
  1. DRONEDARONE [Suspect]
     Indication: ATRIAL FIBRILLATION
     Route: 048
     Dates: start: 20140207, end: 20140225
  2. EKLIRA GENUAIR [Concomitant]
  3. BUDESONIDE/FORMOTEROL [Concomitant]
  4. TERBASMIN [Concomitant]
  5. PANTOPRAZOLE [Concomitant]
  6. CIDINE [Concomitant]
  7. SEGURIL [Concomitant]
  8. SINTROM [Concomitant]
  9. DAXAS [Concomitant]
  10. VESICARE [Concomitant]
  11. CANDESARTAN [Concomitant]
  12. TAMSULOSIN [Concomitant]
  13. METFORMIN [Concomitant]
     Dosage: 850 EVERY 8 HOURS

REACTIONS (3)
  - Gastrointestinal disorder [Recovered/Resolved]
  - Pulmonary mass [Recovered/Resolved]
  - Atrial fibrillation [Not Recovered/Not Resolved]
